FAERS Safety Report 20710293 (Version 4)
Quarter: 2023Q1

REPORT INFORMATION
  Report Type: Report from Study
  Country: CA (occurrence: CA)
  Receive Date: 20220414
  Receipt Date: 20230224
  Transmission Date: 20230417
  Serious: Yes (Hospitalization)
  Sender: FDA-Public Use
  Company Number: CA-BAUSCH-BL-2022-008776

PATIENT
  Age: 51 Year
  Sex: Female

DRUGS (28)
  1. SILIQ [Suspect]
     Active Substance: BRODALUMAB
     Indication: Psoriasis
     Dosage: 210 MG / 1.5 ML, WEEKLY, WEEK 0, 1 AND 2
     Route: 058
     Dates: start: 20210830, end: 202109
  2. SILIQ [Suspect]
     Active Substance: BRODALUMAB
     Dosage: 210 MG / 1.5 ML, EVERY 2 WEEKS (STOPPED DUE TO COVID (2ND EPISODE) (LAST DOSE ON 21/MAR/2022)
     Route: 058
     Dates: start: 2022, end: 20220321
  3. SILIQ [Suspect]
     Active Substance: BRODALUMAB
     Dosage: 210 MG / 1.5 ML, WEEKLY, RESTART
     Route: 058
     Dates: start: 20220411
  4. SILIQ [Suspect]
     Active Substance: BRODALUMAB
     Dosage: 210 MG / 1.5 ML, EVERY 2 WEEKS
     Route: 058
     Dates: start: 2022
  5. SILIQ [Suspect]
     Active Substance: BRODALUMAB
     Dosage: 210 MG / 1.5 ML, WEEKLY REINTRODUCTION
     Route: 058
  6. OMEGA 3 [Concomitant]
     Active Substance: CAPSAICIN
     Indication: Product used for unknown indication
  7. GLUCOSAMINE TURMERIC [Concomitant]
     Indication: Product used for unknown indication
     Dosage: TUMERIC PLUS GLUCOSAMINE
  8. GARLIC [Concomitant]
     Active Substance: GARLIC
     Indication: Product used for unknown indication
  9. COD LIVER OIL [Concomitant]
     Active Substance: COD LIVER OIL
     Indication: Product used for unknown indication
  10. VITAMIN B12 [Concomitant]
     Active Substance: CYANOCOBALAMIN
     Indication: Product used for unknown indication
  11. ZINC [Concomitant]
     Active Substance: ZINC
     Indication: Product used for unknown indication
  12. MAGNESIUM [Concomitant]
     Active Substance: MAGNESIUM
     Indication: Product used for unknown indication
  13. VITAMIN D NOS [Concomitant]
     Active Substance: VITAMIN D NOS
     Indication: Product used for unknown indication
  14. IRON [Concomitant]
     Active Substance: IRON
     Indication: Product used for unknown indication
  15. CLOBETASOL [Concomitant]
     Active Substance: CLOBETASOL
     Indication: Product used for unknown indication
  16. METHOTREXATE [Concomitant]
     Active Substance: METHOTREXATE
     Indication: Product used for unknown indication
  17. MORPHINE [Concomitant]
     Active Substance: MORPHINE
     Indication: Product used for unknown indication
  18. CYCLOBENZAPRINE [Concomitant]
     Active Substance: CYCLOBENZAPRINE
     Indication: Product used for unknown indication
  19. BACLOFEN [Concomitant]
     Active Substance: BACLOFEN
     Indication: Product used for unknown indication
  20. BUPROPION [Concomitant]
     Active Substance: BUPROPION
     Indication: Product used for unknown indication
  21. DULOXETINE [Concomitant]
     Active Substance: DULOXETINE
     Indication: Product used for unknown indication
  22. DEXILANT [Concomitant]
     Active Substance: DEXLANSOPRAZOLE
     Indication: Product used for unknown indication
  23. LORAZEPAM [Concomitant]
     Active Substance: LORAZEPAM
     Indication: Panic attack
  24. GRAVOL [Concomitant]
     Active Substance: DIMENHYDRINATE
     Indication: Nausea
  25. BENADRYL [Concomitant]
     Active Substance: DIPHENHYDRAMINE HYDROCHLORIDE
     Indication: Pruritus allergic
  26. POLYETHYLENE GLYCOL 3350 [Concomitant]
     Active Substance: POLYETHYLENE GLYCOL 3350
     Indication: Abnormal faeces
     Dosage: STOOL SOFTNER
  27. DOCUSATE SODIUM [Concomitant]
     Active Substance: DOCUSATE SODIUM
     Indication: Abnormal faeces
     Dosage: STOOL SOFTNER
  28. TYLENOL ARTHRITIS PAIN [Concomitant]
     Active Substance: ACETAMINOPHEN
     Indication: Product used for unknown indication
     Dosage: 2-4 PER DAY

REACTIONS (15)
  - Muscle rupture [Unknown]
  - Back pain [Unknown]
  - Fall [Recovering/Resolving]
  - Joint injury [Recovering/Resolving]
  - Stress [Unknown]
  - Heart rate increased [Unknown]
  - Blood pressure decreased [Unknown]
  - Ill-defined disorder [Recovering/Resolving]
  - Sleep disorder [Unknown]
  - Psoriasis [Unknown]
  - Gait inability [Unknown]
  - Arthralgia [Unknown]
  - COVID-19 [Not Recovered/Not Resolved]
  - Inability to afford medication [Unknown]
  - Therapy interrupted [Unknown]

NARRATIVE: CASE EVENT DATE: 20210901
